FAERS Safety Report 7763886-9 (Version None)
Quarter: 2011Q3

REPORT INFORMATION
  Report Type: 
  Country: None (occurrence: None)
  Receive Date: 20110919
  Receipt Date: 20110906
  Transmission Date: 20111222
  Serious: Yes (Death, Life-Threatening, Hospitalization)
  Sender: FDA-Public Use
  Company Number: 2009-03937

PATIENT
  Age: 79 Year
  Sex: Male
  Weight: 79.5 kg

DRUGS (5)
  1. CORTIAZEM- SLOW RELEASE (DILTIAZEM) [Concomitant]
  2. YURINEX (BUMETANIDE) [Concomitant]
  3. VELCADE [Suspect]
     Indication: MULTIPLE MYELOMA
     Dosage: 1.3 MG/M2,   , INTRAVENOUS
     Route: 042
     Dates: start: 20090921, end: 20090924
  4. RAMIPRIL [Concomitant]
  5. DEXAMETHASONE TAB [Suspect]
     Indication: MULTIPLE MYELOMA
     Dosage: 20 MG,   , ORAL
     Route: 048
     Dates: start: 20090921, end: 20090925

REACTIONS (6)
  - OLIGURIA [None]
  - ACUTE RESPIRATORY DISTRESS SYNDROME [None]
  - TOXICITY TO VARIOUS AGENTS [None]
  - HYPOTENSION [None]
  - CARDIAC FAILURE [None]
  - ATRIAL FIBRILLATION [None]
